FAERS Safety Report 23223832 (Version 1)
Quarter: 2023Q4

REPORT INFORMATION
  Report Type: Spontaneous
  Country: US (occurrence: US)
  Receive Date: 20231124
  Receipt Date: 20231124
  Transmission Date: 20240110
  Serious: Yes (Other)
  Sender: FDA-Public Use
  Company Number: US-QILU PHARMACEUTICAL CO.LTD.-QLU-000109-2023

PATIENT
  Sex: Female

DRUGS (1)
  1. CEFEPIME HYDROCHLORIDE [Suspect]
     Active Substance: CEFEPIME HYDROCHLORIDE
     Indication: Product used for unknown indication
     Dosage: UNK
     Route: 042
     Dates: start: 20231109

REACTIONS (3)
  - Unresponsive to stimuli [Unknown]
  - Catatonia [Unknown]
  - Hypotension [Unknown]

NARRATIVE: CASE EVENT DATE: 20231110
